FAERS Safety Report 24984462 (Version 1)
Quarter: 2025Q1

REPORT INFORMATION
  Report Type: Spontaneous
  Country: US (occurrence: US)
  Receive Date: 20250219
  Receipt Date: 20250219
  Transmission Date: 20250409
  Serious: No
  Sender: VALIDUS
  Company Number: US-VALIDUS PHARMACEUTICALS LLC-US-VDP-2024-019152

PATIENT

DRUGS (1)
  1. LASIX [Suspect]
     Active Substance: FUROSEMIDE
     Indication: Weight increased
     Route: 065

REACTIONS (2)
  - Renal disorder [Unknown]
  - Product use in unapproved indication [Unknown]
